FAERS Safety Report 7227901-3 (Version None)
Quarter: 2011Q1

REPORT INFORMATION
  Report Type: 
  Country: None (occurrence: None)
  Receive Date: 20110114
  Receipt Date: 20110107
  Transmission Date: 20110831
  Serious: Yes (Other)
  Sender: FDA-Public Use
  Company Number: CN-MERCK-1101CHN00005

PATIENT

DRUGS (2)
  1. PRIMAXIN [Suspect]
     Indication: PERITONITIS BACTERIAL
     Route: 042
     Dates: start: 20110105, end: 20110107
  2. CEFTRIAXONE SODIUM [Concomitant]
     Route: 042

REACTIONS (1)
  - LOSS OF CONSCIOUSNESS [None]
